FAERS Safety Report 17846113 (Version 9)
Quarter: 2021Q3

REPORT INFORMATION
  Report Type: Spontaneous
  Country: US (occurrence: US)
  Receive Date: 20200601
  Receipt Date: 20210914
  Transmission Date: 20211014
  Serious: Yes (Hospitalization, Other)
  Sender: FDA-Public Use
  Company Number: US-PFIZER INC-2020213588

PATIENT
  Age: 69 Year
  Sex: Female

DRUGS (4)
  1. LETROZOLE. [Suspect]
     Active Substance: LETROZOLE
     Dosage: UNK
  2. IBRANCE [Suspect]
     Active Substance: PALBOCICLIB
     Dosage: 125 MG, CYCLIC (125 MG DAILY FOR 21 DAYS ON, 7 DAYS OFF ON A 28 DAY CYCLE)
     Dates: start: 20200507
  3. IBRANCE [Suspect]
     Active Substance: PALBOCICLIB
     Dosage: 125 MG
     Dates: start: 20200729
  4. IBRANCE [Suspect]
     Active Substance: PALBOCICLIB
     Indication: BREAST CANCER FEMALE
     Dosage: 125 MG [STARTED WITH HER IBRANCE THERAPY BACK IN MAR2020]
     Dates: start: 202003

REACTIONS (12)
  - Illness [Unknown]
  - Diabetes mellitus [Unknown]
  - Hot flush [Unknown]
  - Product dose omission issue [Unknown]
  - Asthenia [Not Recovered/Not Resolved]
  - Blood glucose increased [Unknown]
  - Nausea [Unknown]
  - Bone pain [Unknown]
  - Dizziness [Unknown]
  - Pain [Unknown]
  - Fatigue [Not Recovered/Not Resolved]
  - Headache [Unknown]

NARRATIVE: CASE EVENT DATE: 2020
